FAERS Safety Report 13391301 (Version 2)
Quarter: 2017Q2

REPORT INFORMATION
  Report Type: Report from Study
  Country: US (occurrence: US)
  Receive Date: 20170331
  Receipt Date: 20170410
  Transmission Date: 20170830
  Serious: Yes (Death)
  Sender: FDA-Public Use
  Company Number: US-BAYER-2017-060065

PATIENT
  Age: 53 Year
  Sex: Male
  Weight: 78.01 kg

DRUGS (5)
  1. COMPAZINE [Concomitant]
     Active Substance: PROCHLORPERAZINE MALEATE
  2. NAPROXEN. [Concomitant]
     Active Substance: NAPROXEN
  3. MORPHINE [Concomitant]
     Active Substance: MORPHINE
  4. REGORAFENIB [Suspect]
     Active Substance: REGORAFENIB
     Indication: COLORECTAL CANCER METASTATIC
     Dosage: 160 MG, QD
     Route: 048
     Dates: start: 20161124, end: 201703
  5. CYMBALTA [Concomitant]
     Active Substance: DULOXETINE HYDROCHLORIDE

REACTIONS (5)
  - Tachycardia [Fatal]
  - Pneumonia [Fatal]
  - Blood alkaline phosphatase increased [Fatal]
  - Oxygen saturation decreased [Fatal]
  - Dyspnoea [Fatal]

NARRATIVE: CASE EVENT DATE: 20170322
